FAERS Safety Report 10874859 (Version 4)
Quarter: 2015Q2

REPORT INFORMATION
  Report Type: Spontaneous
  Country: JP (occurrence: JP)
  Receive Date: 20150227
  Receipt Date: 20150420
  Transmission Date: 20150821
  Serious: Yes (Death)
  Sender: FDA-Public Use
  Company Number: JP-ABBVIE-15K-087-1353393-00

PATIENT
  Age: 58 Year
  Sex: Male
  Weight: 67 kg

DRUGS (9)
  1. CICLOSPORIN [Concomitant]
     Active Substance: CYCLOSPORINE
     Indication: PSORIASIS
     Route: 048
     Dates: start: 20100706, end: 20150127
  2. BETAMETHASONE BUTYRATE PROPIONATE [Concomitant]
     Active Substance: BETAMETHASONE BUTYRATE PROPIONATE
     Indication: PSORIASIS
     Dosage: 10 G/WEEK
     Route: 061
     Dates: start: 20100629, end: 20150127
  3. TACALCITOL [Concomitant]
     Active Substance: TACALCITOL
     Indication: PSORIASIS
     Dosage: 10 G/WEEK
     Route: 061
     Dates: start: 20100629, end: 20150127
  4. HUMIRA [Suspect]
     Active Substance: ADALIMUMAB
     Route: 058
     Dates: start: 20141225, end: 20150127
  5. CLOBETASOL PROPIONATE. [Concomitant]
     Active Substance: CLOBETASOL PROPIONATE
     Indication: PSORIASIS
     Dosage: 10 G/WEEK
     Route: 061
     Dates: start: 20100629, end: 20150127
  6. CALCIPOTRIOL [Concomitant]
     Active Substance: CALCIPOTRIENE
     Indication: PSORIASIS
     Dosage: 10 G/WEEK
     Route: 061
     Dates: start: 20100629, end: 20150127
  7. HUMIRA [Suspect]
     Active Substance: ADALIMUMAB
     Indication: PSORIASIS
     Route: 058
     Dates: start: 20141211, end: 20141211
  8. BEPOTASTINE BESILATE [Concomitant]
     Active Substance: BEPOTASTINE BESILATE
     Indication: PRURITUS
     Route: 048
     Dates: start: 20110413, end: 20150127
  9. BEPOTASTINE BESILATE [Concomitant]
     Active Substance: BEPOTASTINE BESILATE
     Indication: PSORIASIS

REACTIONS (2)
  - Circulatory collapse [Unknown]
  - Myocardial ischaemia [Fatal]

NARRATIVE: CASE EVENT DATE: 20150212
